FAERS Safety Report 24209812 (Version 2)
Quarter: 2024Q3

REPORT INFORMATION
  Report Type: Spontaneous
  Country: US (occurrence: US)
  Receive Date: 20240814
  Receipt Date: 20240910
  Transmission Date: 20241016
  Serious: No
  Sender: PFIZER
  Company Number: US-PFIZER INC-202400234045

PATIENT
  Age: 69 Year
  Sex: Male

DRUGS (3)
  1. INLYTA [Suspect]
     Active Substance: AXITINIB
     Dosage: 5 MG
  2. INLYTA [Suspect]
     Active Substance: AXITINIB
     Dosage: 1 MG TAB 180
  3. INLYTA [Suspect]
     Active Substance: AXITINIB
     Dosage: 5 MG TAB
     Route: 048

REACTIONS (2)
  - Illness [Recovered/Resolved]
  - Off label use [Unknown]
